FAERS Safety Report 6578526-4 (Version None)
Quarter: 2010Q1

REPORT INFORMATION
  Report Type: 
  Country: None (occurrence: None)
  Receive Date: 20100211
  Receipt Date: 20100203
  Transmission Date: 20100710
  Serious: No
  Sender: FDA-Public Use
  Company Number: US-B.I. PHARMACEUTICALS,INC./RIDGEFIELD-2010-BP-01350BP

PATIENT

DRUGS (1)
  1. MICARDIS HCT [Suspect]
     Route: 048

REACTIONS (2)
  - MUSCLE TIGHTNESS [None]
  - MYALGIA [None]
